FAERS Safety Report 9234965 (Version 1)
Quarter: 2013Q2

REPORT INFORMATION
  Report Type: Spontaneous
  Country: US (occurrence: US)
  Receive Date: 20130416
  Receipt Date: 20130416
  Transmission Date: 20140414
  Serious: No
  Sender: FDA-Public Use
  Company Number: US-ASTRAZENECA-2013SE21033

PATIENT
  Age: 51 Year
  Sex: Female
  Weight: 74.8 kg

DRUGS (8)
  1. NEXIUM [Suspect]
     Indication: GASTROOESOPHAGEAL REFLUX DISEASE
     Route: 048
     Dates: start: 2003
  2. CRESTOR [Suspect]
     Indication: BLOOD CHOLESTEROL INCREASED
     Route: 048
     Dates: start: 2011
  3. LISINOPRIL [Suspect]
     Indication: BLOOD CHOLESTEROL INCREASED
     Route: 048
     Dates: start: 2011
  4. ALPRAZOLAM [Concomitant]
  5. NASONEX SPRAY [Concomitant]
     Indication: MULTIPLE ALLERGIES
  6. NASONEX SPRAY [Concomitant]
     Indication: SINUS DISORDER
  7. ESCITALOPRAM [Concomitant]
     Indication: DEPRESSION
  8. HYDROCODONE [Concomitant]
     Indication: PAIN

REACTIONS (7)
  - Feeling abnormal [Unknown]
  - Gastric disorder [Not Recovered/Not Resolved]
  - Back disorder [Not Recovered/Not Resolved]
  - Sinusitis [Recovering/Resolving]
  - Abdominal discomfort [Not Recovered/Not Resolved]
  - Visual impairment [Unknown]
  - Drug dose omission [Unknown]
